FAERS Safety Report 8150053 (Version 6)
Quarter: 2015Q1

REPORT INFORMATION
  Report Type: Report from Study
  Country: US (occurrence: US)
  Receive Date: 20110922
  Receipt Date: 20150115
  Transmission Date: 20150721
  Serious: Yes (Hospitalization, Other)
  Sender: FDA-Public Use
  Company Number: US-GLAXOSMITHKLINE-R0018342A

PATIENT
  Age: 84 Year
  Sex: Male

DRUGS (8)
  1. PLACEBO [Suspect]
     Active Substance: UNSPECIFIED INGREDIENT
     Route: 030
     Dates: start: 20110503, end: 20110503
  2. CAT SCAN DYE [Suspect]
     Active Substance: UNSPECIFIED INGREDIENT
     Indication: ANGIOGRAM
  3. BLINDED HZ/SU + AS01B [Suspect]
     Active Substance: INVESTIGATIONAL PRODUCT
     Indication: PROPHYLAXIS
     Route: 030
     Dates: start: 20110503, end: 20110503
  4. BLINDED HZ/SU + AS01B [Suspect]
     Active Substance: INVESTIGATIONAL PRODUCT
     Route: 030
     Dates: start: 20110503, end: 20110503
  5. CARVEDILOL. [Suspect]
     Active Substance: CARVEDILOL
     Indication: HYPERTENSION
     Dosage: 50 MG SINGLE DOSE
     Route: 048
     Dates: start: 20101129, end: 20110708
  6. PLACEBO [Suspect]
     Active Substance: UNSPECIFIED INGREDIENT
     Indication: PROPHYLAXIS
     Route: 030
     Dates: start: 20110503, end: 20110503
  7. MICARDIS [Suspect]
     Active Substance: TELMISARTAN
     Indication: HYPERTENSION
     Dosage: 80 MG SINGLE DOSE
     Route: 048
     Dates: start: 2009, end: 20110708
  8. CAT SCAN DYE [Suspect]
     Active Substance: UNSPECIFIED INGREDIENT
     Indication: ANGIOGRAM
     Dosage: SINGLE DOSE
     Route: 042
     Dates: start: 20110620, end: 20110620

REACTIONS (3)
  - Orthostatic hypotension [Recovering/Resolving]
  - Acute kidney injury [Recovered/Resolved]
  - Cystitis klebsiella [Recovered/Resolved]

NARRATIVE: CASE EVENT DATE: 20110625
